FAERS Safety Report 4496881-6 (Version None)
Quarter: 2004Q4

REPORT INFORMATION
  Report Type: 
  Country: None (occurrence: None)
  Receive Date: 20040928
  Receipt Date: 20040723
  Transmission Date: 20050328
  Serious: No
  Sender: FDA-Public Use
  Company Number: 04P-163-0268053-00

PATIENT
  Age: 72 Year
  Sex: Female
  Weight: 74.8435 kg

DRUGS (8)
  1. HUMIRA [Suspect]
     Indication: RHEUMATOID ARTHRITIS
     Dosage: 40 MG, 1 IN 2 WK, SUBCUTANEOUS
     Route: 058
     Dates: start: 20040422
  2. LEVOTHYROID [Concomitant]
  3. LEVOTHYROXINE SODIUM [Concomitant]
  4. GLUCOPHAGE [Concomitant]
  5. ROFECOXIB [Concomitant]
  6. RALOXIFENE HCL [Concomitant]
  7. LEFLUNOMIDE [Concomitant]
  8. ACETYLSALICYLIC ACID [Concomitant]

REACTIONS (3)
  - JOINT EFFUSION [None]
  - PHOTOPHOBIA [None]
  - VISION BLURRED [None]
